FAERS Safety Report 10029403 (Version 4)
Quarter: 2014Q2

REPORT INFORMATION
  Report Type: Report from Study
  Country: AU (occurrence: AU)
  Receive Date: 20140322
  Receipt Date: 20140529
  Transmission Date: 20141212
  Serious: Yes (Hospitalization, Disabling, Other)
  Sender: FDA-Public Use
  Company Number: PHHY2014AU021674

PATIENT
  Age: 61 Year
  Sex: Female

DRUGS (3)
  1. ACLASTA [Suspect]
     Indication: OSTEOPOROSIS
     Dosage: 5 MG, UNK
     Route: 042
     Dates: start: 20120215
  2. ACLASTA [Suspect]
     Dosage: 5 MG, UNK
     Route: 042
     Dates: start: 20130225
  3. ASPIRIN [Concomitant]
     Dosage: 100 MG, DAILY

REACTIONS (13)
  - Cerebrovascular accident [Recovered/Resolved with Sequelae]
  - Sensory loss [Unknown]
  - Motor dysfunction [Unknown]
  - Balance disorder [Unknown]
  - Brain stem infarction [Unknown]
  - Memory impairment [Unknown]
  - Aphasia [Unknown]
  - Gait disturbance [Unknown]
  - Fall [Unknown]
  - Vitamin D decreased [Recovered/Resolved]
  - Confusional state [Unknown]
  - Glomerular filtration rate decreased [Unknown]
  - Dizziness [Unknown]
